FAERS Safety Report 9268712 (Version 1)
Quarter: 2013Q2

REPORT INFORMATION
  Report Type: Spontaneous
  Country: US (occurrence: US)
  Receive Date: 20130502
  Receipt Date: 20130502
  Transmission Date: 20140414
  Serious: No
  Sender: FDA-Public Use
  Company Number: US-ALEXION-A201300201

PATIENT
  Age: 1 Year
  Sex: Male

DRUGS (3)
  1. SOLIRIS 300MG [Suspect]
     Indication: HAEMOLYTIC URAEMIC SYNDROME
     Dosage: 600 MG, QW
     Route: 042
     Dates: start: 20130116
  2. SOLIRIS 300MG [Suspect]
     Dosage: 300 MG, UNK
     Route: 042
     Dates: start: 20130123
  3. SOLIRIS 300MG [Suspect]
     Dosage: 300 MG, UNK
     Route: 042
     Dates: start: 20130130

REACTIONS (4)
  - Lymphadenopathy [Unknown]
  - Blood lactate dehydrogenase increased [Unknown]
  - Incorrect dose administered [Unknown]
  - Intentional drug misuse [Unknown]
